FAERS Safety Report 6172916-X (Version None)
Quarter: 2009Q2

REPORT INFORMATION
  Report Type: 
  Country: None (occurrence: None)
  Receive Date: 20090430
  Receipt Date: 20090421
  Transmission Date: 20091009
  Serious: Yes (Other)
  Sender: FDA-Public Use
  Company Number: PHHY2009CA09581

PATIENT
  Sex: Female

DRUGS (2)
  1. CLOZARIL [Suspect]
     Indication: SCHIZOPHRENIA
     Dosage: 200 MG/DAILY
     Route: 048
     Dates: start: 19950101
  2. SYNTHROID [Concomitant]

REACTIONS (3)
  - ENDOMETRIAL CANCER [None]
  - INVESTIGATION [None]
  - SURGERY [None]
